FAERS Safety Report 7148158-8 (Version None)
Quarter: 2010Q4

REPORT INFORMATION
  Report Type: 
  Country: None (occurrence: None)
  Receive Date: 20101209
  Receipt Date: 20101127
  Transmission Date: 20110411
  Serious: Yes (Other)
  Sender: FDA-Public Use
  Company Number: US-RB-016292-10

PATIENT
  Age: 19 Year
  Sex: Female

DRUGS (1)
  1. MUCINEX D [Suspect]
     Dosage: 6 TABLETS TAKEN IN 8 HOURS
     Route: 048

REACTIONS (2)
  - HYPOAESTHESIA [None]
  - OVERDOSE [None]
